FAERS Safety Report 10067889 (Version 1)
Quarter: 2014Q2

REPORT INFORMATION
  Report Type: Spontaneous
  Country: US (occurrence: US)
  Receive Date: 20140409
  Receipt Date: 20140409
  Transmission Date: 20141212
  Serious: No
  Sender: FDA-Public Use
  Company Number: US-BAUSCH-BL-2013-004710

PATIENT
  Age: 53 Year
  Sex: Female

DRUGS (2)
  1. POLYMYXIN B SULFATE AND TRIMETHOPRIM OPHTHALMIC SOLUTION USP [Suspect]
     Indication: EYE INFECTION
     Dosage: 1 DROP; FOUR TIMES A DAY; RIGHT EYE
     Route: 047
     Dates: start: 20130705, end: 20130707
  2. POLYMYXIN B SULFATE AND TRIMETHOPRIM OPHTHALMIC SOLUTION USP [Suspect]
     Dosage: 1 DROP; FOUR TIMES A DAY; LEFT EYE
     Route: 047
     Dates: start: 20130705, end: 20130707

REACTIONS (3)
  - Instillation site pain [Recovered/Resolved]
  - Eye swelling [Recovered/Resolved]
  - Visual impairment [Not Recovered/Not Resolved]
